FAERS Safety Report 21533612 (Version 1)
Quarter: 2022Q4

REPORT INFORMATION
  Report Type: Spontaneous
  Country: CN (occurrence: CN)
  Receive Date: 20221101
  Receipt Date: 20221101
  Transmission Date: 20230113
  Serious: Yes (Other)
  Sender: FDA-Public Use
  Company Number: CN-GLAXOSMITHKLINE-CNCH2022APC041262

PATIENT

DRUGS (4)
  1. VOLTAREN [Suspect]
     Active Substance: DICLOFENAC SODIUM
     Indication: Inflammation
     Dosage: 25 MG, TID
     Route: 048
     Dates: start: 20221021, end: 20221026
  2. VOLTAREN [Suspect]
     Active Substance: DICLOFENAC SODIUM
     Indication: Analgesic therapy
  3. EPERISONE HYDROCHLORIDE [Suspect]
     Active Substance: EPERISONE HYDROCHLORIDE
     Indication: Muscle spasms
     Dosage: 50 MG, TID
     Route: 048
     Dates: start: 20221021, end: 20221026
  4. HORSE CHESTNUT [Suspect]
     Active Substance: HORSE CHESTNUT
     Indication: Oedema
     Dosage: 260 MG, BID
     Route: 048
     Dates: start: 20221021, end: 20221026

REACTIONS (3)
  - Abdominal pain upper [Recovering/Resolving]
  - Nausea [Recovering/Resolving]
  - Abdominal pain [Recovering/Resolving]

NARRATIVE: CASE EVENT DATE: 20221026
